FAERS Safety Report 8447127-5 (Version None)
Quarter: 2012Q2

REPORT INFORMATION
  Report Type: 
  Country: None (occurrence: None)
  Receive Date: 20120619
  Receipt Date: 20110601
  Transmission Date: 20120825
  Serious: No
  Sender: FDA-Public Use
  Company Number: US-PFIZER INC-K201100676

PATIENT
  Sex: Female
  Weight: 72.562 kg

DRUGS (12)
  1. FIBER [Suspect]
     Indication: CONSTIPATION
     Dosage: UNK
     Route: 048
  2. HYDROCORTISONE [Suspect]
     Indication: BLOOD CORTISOL DECREASED
     Dosage: UNK
     Route: 048
  3. SEROQUEL [Suspect]
     Indication: DEPRESSION
  4. LEVOXYL [Suspect]
     Indication: HYPOTHYROIDISM
     Dosage: 25 MCG DAILY
     Route: 048
  5. XANAX [Suspect]
     Indication: ANXIETY
     Dosage: UNK
  6. XANAX [Suspect]
     Indication: DEPRESSION
  7. DOCUSATE SODIUM [Suspect]
     Indication: CONSTIPATION
     Dosage: UNK
     Route: 048
  8. VITAMIN D [Suspect]
     Indication: VITAMIN D DEFICIENCY
     Dosage: UNK
  9. IBUPROFEN (ADVIL) [Suspect]
     Dosage: UNK
  10. SEROQUEL [Suspect]
     Indication: ANXIETY
     Dosage: UNK
  11. SEROQUEL [Suspect]
     Indication: MOOD SWINGS
  12. XANAX [Suspect]
     Indication: MOOD SWINGS

REACTIONS (2)
  - WEIGHT INCREASED [None]
  - DRUG INEFFECTIVE [None]
